FAERS Safety Report 9780502 (Version 2)
Quarter: 2014Q1

REPORT INFORMATION
  Report Type: Report from Study
  Country: DE (occurrence: DE)
  Receive Date: 20131224
  Receipt Date: 20140131
  Transmission Date: 20141002
  Serious: Yes (Other)
  Sender: FDA-Public Use
  Company Number: DE-ABBVIE-13P-062-1181354-00

PATIENT
  Age: 40 Year
  Sex: Female
  Weight: 67 kg

DRUGS (9)
  1. HUMIRA [Suspect]
     Indication: RHEUMATOID ARTHRITIS
     Route: 058
     Dates: start: 20111019, end: 20130114
  2. HUMIRA [Suspect]
     Route: 058
     Dates: start: 20130317
  3. LEFLUNOMIDE [Concomitant]
     Indication: PRODUCT USED FOR UNKNOWN INDICATION
     Dates: end: 2013
  4. NSAID (NON-STEROIDAL ANTI-INFLAMMATORY DRUGS) [Concomitant]
     Indication: PRODUCT USED FOR UNKNOWN INDICATION
  5. ANALGESIC MEDICATIONS [Concomitant]
     Indication: PRODUCT USED FOR UNKNOWN INDICATION
  6. GLUCORTICOIDS (PREDNISOLONE) [Concomitant]
     Indication: PRODUCT USED FOR UNKNOWN INDICATION
     Dates: start: 201110, end: 20131008
  7. GLUCORTICOIDS (PREDNISOLONE) [Concomitant]
     Dates: start: 20131008
  8. METHOTREXATE (MTX) [Concomitant]
     Indication: PRODUCT USED FOR UNKNOWN INDICATION
     Dates: start: 20131008
  9. LEVOTHYROXINE [Concomitant]
     Indication: PRODUCT USED FOR UNKNOWN INDICATION

REACTIONS (4)
  - Uterine dilation and curettage [Recovered/Resolved]
  - Carcinoma in situ [Recovered/Resolved]
  - Thyroiditis [Not Recovered/Not Resolved]
  - Herpes simplex [Not Recovered/Not Resolved]
